FAERS Safety Report 4726346-5 (Version None)
Quarter: 2005Q3

REPORT INFORMATION
  Report Type: 
  Country: None (occurrence: None)
  Receive Date: 20050725
  Receipt Date: 20050718
  Transmission Date: 20060218
  Serious: Yes (Other)
  Sender: FDA-Public Use
  Company Number: STA-AE-05-MTX-013

PATIENT
  Age: 66 Year
  Sex: Female

DRUGS (1)
  1. METHOTREXATE [Suspect]
     Indication: RHEUMATOID ARTHRITIS
     Dosage: 2.5 MG - 3XW - ORAL
     Route: 048

REACTIONS (5)
  - BLINDNESS [None]
  - BLOOD FOLATE DECREASED [None]
  - COLOUR BLINDNESS [None]
  - HAEMATOCRIT DECREASED [None]
  - SCOTOMA [None]
